FAERS Safety Report 5513882-7 (Version None)
Quarter: 2007Q4

REPORT INFORMATION
  Report Type: 
  Country: None (occurrence: None)
  Receive Date: 20071109
  Receipt Date: 20071109
  Transmission Date: 20080405
  Serious: Yes (Hospitalization, Other)
  Sender: FDA-Public Use
  Company Number: None

PATIENT
  Age: 34 Year
  Sex: Female
  Weight: 99.3377 kg

DRUGS (1)
  1. ALLOPURINOL 100MG TAB [Suspect]
     Indication: GOUT
     Dosage: 2 TABLETS DAILY PO
     Route: 048
     Dates: start: 20041119, end: 20041216

REACTIONS (2)
  - HEPATIC FAILURE [None]
  - RENAL FAILURE [None]
